FAERS Safety Report 6329569-7 (Version None)
Quarter: 2009Q3

REPORT INFORMATION
  Report Type: 
  Country: None (occurrence: None)
  Receive Date: 20090821
  Receipt Date: 20090210
  Transmission Date: 20100115
  Serious: Yes (Hospitalization, Other)
  Sender: FDA-Public Use
  Company Number: 2009-0001USST

PATIENT
  Age: 65 Year
  Sex: Male

DRUGS (5)
  1. PROCARBAZINE [Suspect]
     Indication: LYMPHOMA
     Dosage: 200MG DAILY, PO
     Route: 048
     Dates: start: 20081204, end: 20081211
  2. PROCARBAZINE [Suspect]
     Indication: LYMPHOMA
     Dosage: 200MG DAILY, PO
     Route: 048
     Dates: start: 20081230, end: 20090101
  3. RETUXIMAB [Concomitant]
  4. CYTOXAN [Concomitant]
  5. VINCRISTINE [Concomitant]

REACTIONS (3)
  - ALANINE AMINOTRANSFERASE INCREASED [None]
  - ASPARTATE AMINOTRANSFERASE INCREASED [None]
  - PYREXIA [None]
